FAERS Safety Report 15297731 (Version 1)
Quarter: 2018Q3

REPORT INFORMATION
  Report Type: Spontaneous
  Country: FR (occurrence: FR)
  Receive Date: 20180820
  Receipt Date: 20180820
  Transmission Date: 20181010
  Serious: Yes (Hospitalization)
  Sender: FDA-Public Use
  Company Number: FR-TEVA-2018-FR-944403

PATIENT
  Age: 55 Year
  Sex: Female
  Weight: 54 kg

DRUGS (10)
  1. FLUOROURACILE TEVA [Suspect]
     Active Substance: FLUOROURACIL
     Indication: TONSIL CANCER METASTATIC
     Route: 042
     Dates: start: 20180617, end: 20180703
  2. DOLIPRANE [Concomitant]
     Active Substance: ACETAMINOPHEN
     Route: 048
  3. BACLOFENE [Concomitant]
     Active Substance: BACLOFEN
     Dosage: 90 MILLIGRAM DAILY;
     Route: 048
  4. BROMAZEPAM [Concomitant]
     Active Substance: BROMAZEPAM
     Dosage: 3 MILLIGRAM DAILY;
     Route: 048
  5. AMLOR 10 MG, G?LULE [Concomitant]
     Active Substance: AMLODIPINE BESYLATE
     Dosage: 1 DOSAGE FORMS DAILY;
     Route: 048
  6. ERBITUX [Suspect]
     Active Substance: CETUXIMAB
     Indication: TONSIL CANCER METASTATIC
     Route: 042
     Dates: start: 20180617, end: 20180703
  7. CARBOPLATINE HOSPIRA 10 MG/ML SOLUTION INJECTABLE POUR PERFUSION [Suspect]
     Active Substance: CARBOPLATIN
     Indication: TONSIL CANCER METASTATIC
     Route: 042
     Dates: start: 20180617, end: 20180703
  8. ZAMUDOL L.P. 150 MG, G?LULE ? LIB?RATION PROLONG?E [Concomitant]
     Dosage: 2 DOSAGE FORMS DAILY;
     Route: 048
     Dates: start: 20180617, end: 20180703
  9. PANTOPRAZOLE [Concomitant]
     Active Substance: PANTOPRAZOLE
     Dosage: 40 MILLIGRAM DAILY;
     Route: 048
  10. OROZAMUDOL 50 MG, COMPRIM? ORODISPERSIBLE [Concomitant]
     Active Substance: TRAMADOL
     Route: 048

REACTIONS (1)
  - Ischaemic stroke [Recovering/Resolving]

NARRATIVE: CASE EVENT DATE: 20180707
